FAERS Safety Report 6069831-9 (Version None)
Quarter: 2009Q1

REPORT INFORMATION
  Report Type: 
  Country: None (occurrence: None)
  Receive Date: 20090209
  Receipt Date: 20090202
  Transmission Date: 20090719
  Serious: Yes (Hospitalization)
  Sender: FDA-Public Use
  Company Number: US-BIOGENIDEC-2009BI003604

PATIENT
  Age: 53 Year
  Sex: Female

DRUGS (2)
  1. TYSABRI [Suspect]
     Indication: MULTIPLE SCLEROSIS
     Route: 042
     Dates: start: 20050205, end: 20050101
  2. TYSABRI [Suspect]
     Route: 042
     Dates: start: 20070104

REACTIONS (3)
  - BLOOD COUNT ABNORMAL [None]
  - DYSPHAGIA [None]
  - INTESTINAL OBSTRUCTION [None]
